FAERS Safety Report 9138325 (Version 3)
Quarter: 2013Q2

REPORT INFORMATION
  Report Type: Spontaneous
  Country: ES (occurrence: ES)
  Receive Date: 20130305
  Receipt Date: 20130416
  Transmission Date: 20140414
  Serious: Yes (Death, Hospitalization, Other)
  Sender: FDA-Public Use
  Company Number: ES-BIOGENIDEC-2012BI050656

PATIENT
  Age: 32 Year
  Sex: Male

DRUGS (2)
  1. TYSABRI [Suspect]
     Indication: MULTIPLE SCLEROSIS
     Route: 042
     Dates: start: 201002, end: 20130207
  2. CANNABIS [Concomitant]

REACTIONS (8)
  - Progressive multifocal leukoencephalopathy [Not Recovered/Not Resolved]
  - Status epilepticus [Recovered/Resolved]
  - Bronchopneumonia [Fatal]
  - Confusional state [Unknown]
  - Bradyphrenia [Unknown]
  - Asthenia [Unknown]
  - Clumsiness [Unknown]
  - Drug abuse [Unknown]
